FAERS Safety Report 24382789 (Version 2)
Quarter: 2024Q4

REPORT INFORMATION
  Report Type: Report from Study
  Country: MX (occurrence: MX)
  Receive Date: 20241001
  Receipt Date: 20241118
  Transmission Date: 20250114
  Serious: Yes (Death, Hospitalization)
  Sender: AMGEN
  Company Number: MX-AMGEN-MEXSL2024191423

PATIENT
  Age: 59 Year
  Sex: Male

DRUGS (1)
  1. VECTIBIX [Suspect]
     Active Substance: PANITUMUMAB
     Indication: Colorectal cancer
     Dosage: 480 MILLIGRAM EVERY 15 DAYS
     Route: 065
     Dates: start: 20240611

REACTIONS (1)
  - Blood glucose increased [Fatal]

NARRATIVE: CASE EVENT DATE: 20240901
